FAERS Safety Report 9315583 (Version 2)
Quarter: 2013Q3

REPORT INFORMATION
  Report Type: Spontaneous
  Country: AU (occurrence: AU)
  Receive Date: 20130529
  Receipt Date: 20130702
  Transmission Date: 20140515
  Serious: Yes (Life-Threatening, Hospitalization)
  Sender: FDA-Public Use
  Company Number: AU-B.I. PHARMACEUTICALS,INC./RIDGEFIELD-2013-AU-00588AU

PATIENT
  Age: 71 Year
  Sex: Male

DRUGS (4)
  1. PRADAXA [Suspect]
     Dosage: 220 MG
     Dates: start: 20110929
  2. ATORVASTATIN [Concomitant]
     Dates: start: 20070130
  3. RAMIPRIL [Concomitant]
     Dates: start: 20031208
  4. LOVAN [Concomitant]
     Dates: start: 20121118

REACTIONS (1)
  - Acute myocardial infarction [Recovered/Resolved]
